FAERS Safety Report 4684329-8 (Version None)
Quarter: 2005Q2

REPORT INFORMATION
  Report Type: 
  Country: None (occurrence: None)
  Receive Date: 20050531
  Receipt Date: 20041110
  Transmission Date: 20051028
  Serious: Yes (Other)
  Sender: FDA-Public Use
  Company Number: USA041183787

PATIENT
  Age: 31 Year
  Sex: Female

DRUGS (2)
  1. ZYPREXA [Suspect]
     Dosage: 50 MG DAY
     Dates: start: 20040401
  2. RISPERDAL [Concomitant]

REACTIONS (2)
  - HEPATIC ENZYME INCREASED [None]
  - PRESCRIBED OVERDOSE [None]
